FAERS Safety Report 11664113 (Version 1)
Quarter: 2015Q4

REPORT INFORMATION
  Report Type: Spontaneous
  Country: US (occurrence: None)
  Receive Date: 20151026
  Receipt Date: 20151026
  Transmission Date: 20160304
  Serious: Yes (Other)
  Sender: FDA-Public Use
  Company Number: None

PATIENT
  Age: 56 Year
  Sex: Female
  Weight: 61.24 kg

DRUGS (5)
  1. SYNTHROID [Concomitant]
     Active Substance: LEVOTHYROXINE SODIUM
  2. BLOOD PRESSURE MEDICINE [Concomitant]
     Active Substance: UNSPECIFIED INGREDIENT
  3. ETODOLAC. [Suspect]
     Active Substance: ETODOLAC
     Indication: ARTHRALGIA
     Dosage: 1 PILL  ONCE DAILY
     Dates: start: 20151008, end: 20151015
  4. ETODOLAC. [Suspect]
     Active Substance: ETODOLAC
     Indication: JOINT SWELLING
     Dosage: 1 PILL  ONCE DAILY
     Dates: start: 20151008, end: 20151015
  5. POTASSIUM [Concomitant]
     Active Substance: POTASSIUM

REACTIONS (1)
  - Drug hypersensitivity [None]

NARRATIVE: CASE EVENT DATE: 20151016
